FAERS Safety Report 6083254-8 (Version None)
Quarter: 2009Q1

REPORT INFORMATION
  Report Type: 
  Country: None (occurrence: None)
  Receive Date: 20090217
  Receipt Date: 20090209
  Transmission Date: 20090719
  Serious: Yes (Other)
  Sender: FDA-Public Use
  Company Number: DSU-2009-00350

PATIENT
  Age: 27 Year
  Sex: Male

DRUGS (1)
  1. BENICAR HCT [Suspect]
     Indication: DRUG USE FOR UNKNOWN INDICATION
     Dosage: 40/12.5 MG (QD), PER ORAL
     Route: 048
     Dates: start: 20080701

REACTIONS (2)
  - PALATAL OEDEMA [None]
  - TREATMENT NONCOMPLIANCE [None]
